FAERS Safety Report 4727941-X (Version None)
Quarter: 2005Q3

REPORT INFORMATION
  Report Type: 
  Country: None (occurrence: None)
  Receive Date: 20050725
  Receipt Date: 20050322
  Transmission Date: 20060218
  Serious: No
  Sender: FDA-Public Use
  Company Number: USA050393893

PATIENT
  Age: 62 Year
  Sex: Female

DRUGS (1)
  1. STRATTERA [Suspect]
     Indication: ATTENTION DEFICIT/HYPERACTIVITY DISORDER
     Dosage: 100 MG DAY
     Dates: start: 20040701

REACTIONS (3)
  - ANGER [None]
  - DRUG INEFFECTIVE [None]
  - PSYCHOMOTOR HYPERACTIVITY [None]
